FAERS Safety Report 8222199-1 (Version None)
Quarter: 2012Q1

REPORT INFORMATION
  Report Type: 
  Country: None (occurrence: None)
  Receive Date: 20120320
  Receipt Date: 20120312
  Transmission Date: 20120608
  Serious: Yes (Death)
  Sender: FDA-Public Use
  Company Number: GB-JNJFOC-20111207972

PATIENT
  Age: 20 Year
  Sex: Female

DRUGS (2)
  1. ACETAMINOPHEN [Suspect]
     Indication: PROCEDURAL PAIN
     Route: 065
     Dates: start: 20110101
  2. ACETAMINOPHEN [Suspect]
     Route: 065

REACTIONS (4)
  - HEPATIC FAILURE [None]
  - OVERDOSE [None]
  - VOMITING [None]
  - TOXICITY TO VARIOUS AGENTS [None]
